FAERS Safety Report 14371952 (Version 1)
Quarter: 2018Q1

REPORT INFORMATION
  Report Type: Spontaneous
  Country: US (occurrence: US)
  Receive Date: 20180109
  Receipt Date: 20180109
  Transmission Date: 20180509
  Serious: No
  Sender: FDA-Public Use
  Company Number: None

PATIENT
  Age: 31 Year
  Sex: Female
  Weight: 57 kg

DRUGS (1)
  1. ANTI BAC ACNE CLEARING [Suspect]
     Active Substance: BENZOYL PEROXIDE
     Indication: ACNE
     Route: 061

REACTIONS (3)
  - Pruritus [None]
  - Application site swelling [None]
  - Swelling face [None]

NARRATIVE: CASE EVENT DATE: 20180107
